FAERS Safety Report 25768480 (Version 1)
Quarter: 2025Q3

REPORT INFORMATION
  Report Type: Spontaneous
  Country: US (occurrence: US)
  Receive Date: 20250905
  Receipt Date: 20250905
  Transmission Date: 20251021
  Serious: No
  Sender: GILEAD
  Company Number: US-GILEAD-2025-0726838

PATIENT
  Age: 57 Year
  Sex: Female

DRUGS (1)
  1. LIVDELZI [Suspect]
     Active Substance: SELADELPAR LYSINE
     Indication: Primary biliary cholangitis
     Route: 065
     Dates: start: 20250827

REACTIONS (2)
  - Dizziness [Unknown]
  - Cough [Unknown]
